FAERS Safety Report 8364110-9 (Version None)
Quarter: 2012Q2

REPORT INFORMATION
  Report Type: 
  Country: None (occurrence: None)
  Receive Date: 20120516
  Receipt Date: 20120508
  Transmission Date: 20120825
  Serious: Yes (Hospitalization, Congenital Anomaly, Other)
  Sender: FDA-Public Use
  Company Number: US-PFIZER INC-2012034294

PATIENT
  Sex: Male
  Weight: 3.1 kg

DRUGS (5)
  1. ZOLOFT [Suspect]
     Indication: AFFECTIVE DISORDER
  2. ZOLOFT [Suspect]
     Indication: ANXIETY
     Dosage: 25 MG, UNK
     Route: 064
  3. MULTI-VITAMINS [Concomitant]
     Dosage: UNK
     Route: 064
  4. ZOLOFT [Suspect]
     Indication: DEPRESSION
  5. THYROID TAB [Concomitant]
     Dosage: 30 UG, 1X/DAY
     Route: 064

REACTIONS (11)
  - PATENT DUCTUS ARTERIOSUS [None]
  - JAUNDICE NEONATAL [None]
  - CONGENITAL NAEVUS [None]
  - FOETAL GROWTH RESTRICTION [None]
  - EXOMPHALOS [None]
  - SEPSIS NEONATAL [None]
  - MATERNAL EXPOSURE TIMING UNSPECIFIED [None]
  - ATRIAL SEPTAL DEFECT [None]
  - SUPRAVENTRICULAR TACHYCARDIA [None]
  - CYANOSIS [None]
  - NEONATAL RESPIRATORY DISTRESS SYNDROME [None]
